FAERS Safety Report 23240948 (Version 1)
Quarter: 2023Q4

REPORT INFORMATION
  Report Type: Spontaneous
  Country: US (occurrence: None)
  Receive Date: 20231129
  Receipt Date: 20231129
  Transmission Date: 20240110
  Serious: Yes (Death)
  Sender: FDA-Public Use
  Company Number: None

PATIENT
  Age: 65 Year
  Sex: Female

DRUGS (9)
  1. SOFOSBUVIR\VELPATASVIR [Suspect]
     Active Substance: SOFOSBUVIR\VELPATASVIR
     Indication: Chronic hepatitis C
     Dosage: OTHER QUANTITY : 400/100 MG ;?FREQUENCY : DAILY;?
     Route: 048
     Dates: start: 20231108, end: 20231128
  2. METHOCARBAMOL [Concomitant]
  3. ALBUTEROL HFA INH (200 PUFFS) 18GM [Concomitant]
  4. FLUTICASON HFA 44MCG INH 120INH [Concomitant]
  5. GABAPENTIN 100MG [Concomitant]
  6. LISINOPRIL/HCTZ 10-12.5MG [Concomitant]
  7. LORATADINE 10MG [Concomitant]
  8. MELOXICAM 15MG [Concomitant]
  9. NORCO 10-325MG [Concomitant]

REACTIONS (1)
  - Death [None]

NARRATIVE: CASE EVENT DATE: 20231128
